FAERS Safety Report 14692976 (Version 1)
Quarter: 2018Q1

REPORT INFORMATION
  Report Type: Spontaneous
  Country: FR (occurrence: FR)
  Receive Date: 20180329
  Receipt Date: 20180329
  Transmission Date: 20180509
  Serious: Yes (Other)
  Sender: FDA-Public Use
  Company Number: FR-MERCK KGAA-2044753

PATIENT
  Age: 67 Year
  Sex: Female

DRUGS (1)
  1. NOVOTHYROX [Suspect]
     Active Substance: LEVOTHYROXINE SODIUM
     Indication: PRODUCT USED FOR UNKNOWN INDICATION
     Dates: start: 201703

REACTIONS (12)
  - Dizziness [None]
  - Weight increased [None]
  - Fatigue [None]
  - Depression [None]
  - Impaired driving ability [None]
  - Social problem [None]
  - High density lipoprotein [None]
  - Arthralgia [None]
  - Blood cholesterol increased [None]
  - Tendonitis [None]
  - Loss of personal independence in daily activities [None]
  - Gait disturbance [None]

NARRATIVE: CASE EVENT DATE: 201704
